FAERS Safety Report 4462414-3 (Version None)
Quarter: 2004Q3

REPORT INFORMATION
  Report Type: 
  Country: None (occurrence: None)
  Receive Date: 20040924
  Receipt Date: 20040909
  Transmission Date: 20050211
  Serious: Yes (Other)
  Sender: FDA-Public Use
  Company Number: 2004-DE-04760GD

PATIENT
  Age: 58 Year
  Sex: Female

DRUGS (2)
  1. PRAMIPEXOLE           (PRAMIPEXOLE DIHYDROCHLORIDE) [Suspect]
     Indication: PARKINSON'S DISEASE
     Dosage: SEE IMAGE
  2. SINEMET [Suspect]
     Indication: PARKINSON'S DISEASE
     Dosage: 1500 MG

REACTIONS (11)
  - DRUG EFFECT DECREASED [None]
  - DRUG INEFFECTIVE [None]
  - DRUG THERAPY CHANGED [None]
  - DYSKINESIA [None]
  - DYSTONIA [None]
  - GENERAL PHYSICAL HEALTH DETERIORATION [None]
  - MOTOR DYSFUNCTION [None]
  - NEUROLEPTIC MALIGNANT SYNDROME [None]
  - PAIN [None]
  - REBOUND EFFECT [None]
  - WHITE BLOOD CELL COUNT INCREASED [None]
